FAERS Safety Report 10210970 (Version 3)
Quarter: 2014Q3

REPORT INFORMATION
  Report Type: Report from Study
  Country: AT (occurrence: AT)
  Receive Date: 20140602
  Receipt Date: 20140805
  Transmission Date: 20150326
  Serious: Yes (Hospitalization, Other)
  Sender: FDA-Public Use
  Company Number: AT-BRISTOL-MYERS SQUIBB COMPANY-20579603

PATIENT
  Age: 77 Year
  Sex: Male

DRUGS (5)
  1. CONCOR [Concomitant]
     Active Substance: BISOPROLOL FUMARATE
  2. PREDNISOLONE. [Concomitant]
     Active Substance: PREDNISOLONE
  3. ABATACEPT SUBQ INJECTION 125MG/ML [Suspect]
     Active Substance: ABATACEPT
     Indication: RHEUMATOID ARTHRITIS
     Dosage: INTERRUPTED : 16JAN2014
     Route: 058
     Dates: start: 20131031, end: 20140116
  4. MARCOUMAR [Suspect]
     Active Substance: PHENPROCOUMON
     Indication: ATRIAL FIBRILLATION
     Dosage: 1DF: 0.25MG-3MG
     Route: 048
     Dates: end: 20140312
  5. ULCOGANT [Concomitant]
     Active Substance: SUCRALFATE

REACTIONS (8)
  - Monoclonal gammopathy [Unknown]
  - Decreased appetite [Unknown]
  - Benign prostatic hyperplasia [Unknown]
  - Renal failure acute [Not Recovered/Not Resolved]
  - Cystitis haemorrhagic [Unknown]
  - Dehydration [Unknown]
  - Haematuria [Not Recovered/Not Resolved]
  - Fatigue [Unknown]

NARRATIVE: CASE EVENT DATE: 20131219
